FAERS Safety Report 18275360 (Version 1)
Quarter: 2020Q3

REPORT INFORMATION
  Report Type: Spontaneous
  Country: US (occurrence: US)
  Receive Date: 20200917
  Receipt Date: 20200917
  Transmission Date: 20201103
  Serious: Yes (Hospitalization, Other)
  Sender: FDA-Public Use
  Company Number: US-DRREDDYS-USA/USA/20/0126781

PATIENT
  Age: 17 Year
  Sex: Male

DRUGS (17)
  1. CANDESARTAN?CILEXETIL [Concomitant]
     Active Substance: CANDESARTAN CILEXETIL
     Indication: IMMUNOSUPPRESSANT DRUG THERAPY
  2. CEPHALEXIN. [Concomitant]
     Active Substance: CEPHALEXIN
     Indication: IMMUNOSUPPRESSANT DRUG THERAPY
  3. PREDNISONE. [Suspect]
     Active Substance: PREDNISONE
     Indication: IMMUNOSUPPRESSANT DRUG THERAPY
  4. VALGANCICLOVIR TABLETS [Concomitant]
     Active Substance: VALGANCICLOVIR
     Indication: IMMUNOSUPPRESSANT DRUG THERAPY
  5. HYDROXYCHLOROQUINE [Concomitant]
     Active Substance: HYDROXYCHLOROQUINE
     Indication: IMMUNOSUPPRESSANT DRUG THERAPY
  6. RITUXIMAB. [Concomitant]
     Active Substance: RITUXIMAB
     Indication: IMMUNOSUPPRESSANT DRUG THERAPY
  7. MYCOPHENOLIC ACID. [Concomitant]
     Active Substance: MYCOPHENOLIC ACID
     Indication: IMMUNOSUPPRESSANT DRUG THERAPY
  8. CLONIDINE. [Concomitant]
     Active Substance: CLONIDINE
     Indication: IMMUNOSUPPRESSANT DRUG THERAPY
  9. MULTIVITAMIN [Concomitant]
     Active Substance: VITAMINS
     Indication: IMMUNOSUPPRESSANT DRUG THERAPY
  10. AMLODIPINE [Concomitant]
     Active Substance: AMLODIPINE BESYLATE
     Indication: IMMUNOSUPPRESSANT DRUG THERAPY
  11. SODIUM BICARBONATE. [Concomitant]
     Active Substance: SODIUM BICARBONATE
     Indication: IMMUNOSUPPRESSANT DRUG THERAPY
  12. TACROLIMUS. [Suspect]
     Active Substance: TACROLIMUS
     Indication: IMMUNOSUPPRESSANT DRUG THERAPY
     Dosage: DAILY, (GOAL RANGE 6?8 NG/ML)
     Route: 065
  13. METHYLPREDNISOLONE. [Suspect]
     Active Substance: METHYLPREDNISOLONE
     Dosage: MYCOPHENOLIC ACID
     Route: 042
  14. BASILIXIMAB [Concomitant]
     Active Substance: BASILIXIMAB
     Indication: IMMUNOSUPPRESSANT DRUG THERAPY
  15. METHYLPREDNISOLONE. [Suspect]
     Active Substance: METHYLPREDNISOLONE
     Indication: IMMUNOSUPPRESSANT DRUG THERAPY
     Route: 042
  16. RAPAMUNE [Interacting]
     Active Substance: SIROLIMUS
     Indication: IMMUNOSUPPRESSANT DRUG THERAPY
     Route: 048
  17. ANTITHYMOCYTE?GLOBULIN (THYMOGLOBULIN) [Concomitant]
     Indication: IMMUNOSUPPRESSANT DRUG THERAPY

REACTIONS (8)
  - Condition aggravated [Recovering/Resolving]
  - Drug interaction [Unknown]
  - Respiratory distress [Unknown]
  - Respiratory failure [Unknown]
  - Hypoxia [Unknown]
  - Pulmonary oedema [Recovering/Resolving]
  - Interstitial lung disease [Unknown]
  - Renal impairment [Recovering/Resolving]
